FAERS Safety Report 9672033 (Version 4)
Quarter: 2014Q2

REPORT INFORMATION
  Report Type: Report from Study
  Country: JP (occurrence: JP)
  Receive Date: 20131106
  Receipt Date: 20140429
  Transmission Date: 20141212
  Serious: Yes (Other)
  Sender: FDA-Public Use
  Company Number: JP-GLAXOSMITHKLINE-B0936787A

PATIENT
  Age: 70 Year
  Sex: Male

DRUGS (24)
  1. REQUIP [Suspect]
     Indication: PARKINSON^S DISEASE
     Dosage: 10MG PER DAY
     Route: 048
     Dates: start: 20130205, end: 20130225
  2. REQUIP [Suspect]
     Indication: PARKINSON^S DISEASE
     Dosage: 12MG PER DAY
     Route: 048
     Dates: start: 20130226, end: 20130308
  3. REQUIP [Suspect]
     Indication: PARKINSON^S DISEASE
     Dosage: 7MG TWICE PER DAY
     Route: 048
     Dates: start: 20130309, end: 20130325
  4. REQUIP [Suspect]
     Indication: PARKINSON^S DISEASE
     Dosage: 14MG PER DAY
     Route: 048
     Dates: start: 20130326, end: 20130401
  5. REQUIP [Suspect]
     Indication: PARKINSON^S DISEASE
     Route: 048
     Dates: start: 20130402
  6. REQUIP [Suspect]
     Indication: PARKINSON^S DISEASE
     Route: 048
  7. REQUIP [Suspect]
     Indication: PARKINSON^S DISEASE
     Route: 048
  8. REQUIP [Suspect]
     Indication: PARKINSON^S DISEASE
     Route: 048
  9. MADOPAR [Concomitant]
     Indication: PARKINSON^S DISEASE
     Route: 048
     Dates: end: 20130729
  10. MADOPAR [Concomitant]
     Indication: PARKINSON^S DISEASE
     Route: 048
     Dates: start: 20130730, end: 20130822
  11. MADOPAR [Concomitant]
     Indication: PARKINSON^S DISEASE
     Route: 048
     Dates: start: 20130823
  12. COMTAN [Concomitant]
     Indication: PARKINSON^S DISEASE
     Route: 048
  13. TRERIEF [Concomitant]
     Indication: PARKINSON^S DISEASE
     Dosage: 25MG PER DAY
     Route: 048
     Dates: end: 20131017
  14. TRERIEF [Concomitant]
     Indication: PARKINSON^S DISEASE
     Route: 048
     Dates: start: 20131018
  15. PAXIL [Concomitant]
     Dosage: 25MG PER DAY
     Route: 048
     Dates: end: 20130507
  16. RIVOTRIL [Concomitant]
     Indication: TREMOR
     Dosage: .5MG PER DAY
     Route: 048
  17. ARICEPT D [Concomitant]
     Indication: RAPID EYE MOVEMENTS SLEEP ABNORMAL
     Dosage: 5MG PER DAY
     Route: 048
     Dates: start: 201012
  18. SELBEX [Concomitant]
     Dosage: 50MG THREE TIMES PER DAY
     Route: 048
     Dates: end: 20130823
  19. NEXIUM [Concomitant]
     Dosage: 20MG PER DAY
     Route: 048
     Dates: end: 20130624
  20. NAUZELIN [Concomitant]
     Dosage: 10MG THREE TIMES PER DAY
     Route: 048
  21. FLIVAS [Concomitant]
     Route: 048
  22. MAGMITT [Concomitant]
     Dosage: 330MG THREE TIMES PER DAY
     Route: 048
  23. NOURIAST [Concomitant]
     Indication: PARKINSON^S DISEASE
     Dosage: 20MG PER DAY
     Route: 048
     Dates: start: 20130906, end: 20130919
  24. NOURIAST [Concomitant]
     Indication: PARKINSON^S DISEASE
     Route: 048
     Dates: start: 20130920

REACTIONS (5)
  - Sudden onset of sleep [Recovering/Resolving]
  - Sudden onset of sleep [Recovering/Resolving]
  - Tuberculosis [Not Recovered/Not Resolved]
  - Somnolence [Recovering/Resolving]
  - Periarthritis [Not Recovered/Not Resolved]
